FAERS Safety Report 12608875 (Version 2)
Quarter: 2016Q3

REPORT INFORMATION
  Report Type: Report from Study
  Country: ZA (occurrence: ZA)
  Receive Date: 20160730
  Receipt Date: 20160920
  Transmission Date: 20161109
  Serious: Yes (Death, Hospitalization)
  Sender: FDA-Public Use
  Company Number: ZA-AMGEN-ZAFSL2016096577

PATIENT
  Age: 33 Year
  Sex: Male

DRUGS (1)
  1. ARANESP [Suspect]
     Active Substance: DARBEPOETIN ALFA
     Indication: NEPHROGENIC ANAEMIA
     Dosage: 60 MUG, QWK
     Route: 042
     Dates: start: 201603, end: 201609

REACTIONS (3)
  - Malaise [Unknown]
  - Extra dose administered [Unknown]
  - Hypotension [Fatal]

NARRATIVE: CASE EVENT DATE: 201606
